FAERS Safety Report 16731636 (Version 1)
Quarter: 2019Q3

REPORT INFORMATION
  Report Type: Spontaneous
  Country: CA (occurrence: CA)
  Receive Date: 20190822
  Receipt Date: 20190822
  Transmission Date: 20191005
  Serious: Yes (Death, Other)
  Sender: FDA-Public Use
  Company Number: CA-JNJFOC-20190824095

PATIENT
  Age: 40 Year

DRUGS (10)
  1. METHOTREXATE. [Concomitant]
     Active Substance: METHOTREXATE
     Indication: SYSTEMIC LUPUS ERYTHEMATOSUS
     Route: 065
  2. HEPARIN [Suspect]
     Active Substance: HEPARIN SODIUM
     Indication: CARDIAC VENTRICULAR THROMBOSIS
     Dosage: UNK
     Route: 042
     Dates: start: 20141008, end: 20141009
  3. CLOPIDOGREL [Suspect]
     Active Substance: CLOPIDOGREL BISULFATE
     Dosage: 300 MG LODADING DOSE
     Route: 065
     Dates: start: 20141011
  4. PREDNISONE. [Concomitant]
     Active Substance: PREDNISONE
     Indication: SYSTEMIC LUPUS ERYTHEMATOSUS
     Route: 065
  5. HYDROXYCHLOROQUINE [Concomitant]
     Active Substance: HYDROXYCHLOROQUINE
     Indication: SYSTEMIC LUPUS ERYTHEMATOSUS
     Route: 065
  6. ACETYLSALICYLIC ACID [Suspect]
     Active Substance: ASPIRIN
     Dosage: UNK
     Route: 065
     Dates: start: 20140903, end: 20141002
  7. AZATHIOPRINE. [Concomitant]
     Active Substance: AZATHIOPRINE
     Indication: SYSTEMIC LUPUS ERYTHEMATOSUS
     Route: 065
  8. RIVAROXABAN [Suspect]
     Active Substance: RIVAROXABAN
     Indication: CARDIAC VENTRICULAR THROMBOSIS
     Dosage: 15 MG, BID
     Route: 048
     Dates: start: 20140928, end: 20141007
  9. HEPARIN [Suspect]
     Active Substance: HEPARIN SODIUM
     Indication: TRANSIENT ISCHAEMIC ATTACK
     Dosage: UNK
     Route: 042
     Dates: start: 20141011
  10. CLOPIDOGREL [Suspect]
     Active Substance: CLOPIDOGREL BISULFATE
     Dosage: 75 MG, QD
     Route: 065
     Dates: start: 20141012

REACTIONS (11)
  - Blood pressure decreased [Unknown]
  - Hyporesponsive to stimuli [Unknown]
  - Labelled drug-drug interaction medication error [Unknown]
  - Off label use [Unknown]
  - Haematuria [Unknown]
  - Cardiac arrest [Fatal]
  - Cerebral infarction [Unknown]
  - Product use in unapproved indication [Unknown]
  - Respiratory rate decreased [Unknown]
  - Retroperitoneal haemorrhage [Fatal]
  - Transient ischaemic attack [Unknown]

NARRATIVE: CASE EVENT DATE: 20140928
